FAERS Safety Report 9616906 (Version 3)
Quarter: 2013Q4

REPORT INFORMATION
  Report Type: Report from Study
  Country: ES (occurrence: ES)
  Receive Date: 20131011
  Receipt Date: 20131105
  Transmission Date: 20140711
  Serious: Yes (Hospitalization)
  Sender: FDA-Public Use
  Company Number: ES-VERTEX PHARMACEUTICALS INC-2013-010273

PATIENT
  Age: 39 Year
  Sex: Male
  Weight: 58 kg

DRUGS (5)
  1. BLINDED PRE-TREATMENT [Suspect]
     Indication: CHRONIC HEPATITIS C
     Dosage: TID
     Route: 048
     Dates: start: 20121112, end: 20130203
  2. BLINDED TMC435 [Suspect]
     Indication: CHRONIC HEPATITIS C
     Dosage: TID
     Route: 048
     Dates: start: 20121112, end: 20130203
  3. BLINDED VX-950 (TELAPREVIR) [Suspect]
     Indication: CHRONIC HEPATITIS C
     Dosage: TID
     Route: 048
     Dates: start: 20121112, end: 20130203
  4. PEGINTERFERON ALFA-2A [Suspect]
     Indication: CHRONIC HEPATITIS C
     Dosage: DOSAGE FORM: INJECTION
     Route: 058
     Dates: start: 20121112, end: 20131008
  5. RIBAVIRIN [Suspect]
     Indication: CHRONIC HEPATITIS C
     Dosage: DOSAGE FORM: TABLET, 2 DOSES IN THE MORNING AND 3 DOSES IN THE EVENING
     Route: 048
     Dates: start: 20121112, end: 20131008

REACTIONS (1)
  - Pneumonia pneumococcal [Unknown]
